FAERS Safety Report 9715955 (Version 1)
Quarter: 2013Q4

REPORT INFORMATION
  Report Type: Spontaneous
  Country: GB (occurrence: GB)
  Receive Date: 20131127
  Receipt Date: 20131127
  Transmission Date: 20140711
  Serious: Yes (Hospitalization)
  Sender: FDA-Public Use
  Company Number: GB-DRREDDYS-GER/UKI/13/0035835

PATIENT
  Age: 54 Year
  Sex: Male
  Weight: 111 kg

DRUGS (10)
  1. CIPROFLOXACIN [Suspect]
     Indication: URINARY TRACT INFECTION
     Dates: start: 20131108
  2. EXENATIDE [Concomitant]
     Indication: PRODUCT USED FOR UNKNOWN INDICATION
     Dates: start: 20130902, end: 20130909
  3. EXENATIDE [Concomitant]
     Dates: start: 20131011, end: 20131018
  4. GLICAZIDE [Concomitant]
     Indication: PRODUCT USED FOR UNKNOWN INDICATION
     Dates: start: 20130801, end: 20130829
  5. GLICAZIDE [Concomitant]
     Dates: start: 20130902, end: 20131108
  6. METFORMIN [Concomitant]
     Indication: PRODUCT USED FOR UNKNOWN INDICATION
     Dates: start: 20130902, end: 20130930
  7. METFORMIN [Concomitant]
     Dates: start: 20131011, end: 20131108
  8. SIMVASTATIN [Concomitant]
     Indication: PRODUCT USED FOR UNKNOWN INDICATION
     Dates: start: 20130801, end: 20130829
  9. SIMVASTATIN [Concomitant]
     Dates: start: 20130902, end: 20130930
  10. SIMVASTATIN [Concomitant]
     Dates: start: 20131011, end: 20131108

REACTIONS (1)
  - Pericarditis [Recovering/Resolving]
